FAERS Safety Report 9206737 (Version 1)
Quarter: 2013Q2

REPORT INFORMATION
  Report Type: Spontaneous
  Country: GB (occurrence: None)
  Receive Date: 20130401
  Receipt Date: 20130401
  Transmission Date: 20140414
  Serious: Yes (Other)
  Sender: FDA-Public Use
  Company Number: 1651029

PATIENT
  Age: 57 Year
  Sex: Female
  Weight: 41.55 kg

DRUGS (2)
  1. DOCETAXEL [Suspect]
     Indication: BREAST CANCER
     Route: 042
     Dates: start: 20121226
  2. DEXAMETHASONE [Concomitant]

REACTIONS (2)
  - Skin reaction [None]
  - Blister [None]
